FAERS Safety Report 24791055 (Version 3)
Quarter: 2025Q1

REPORT INFORMATION
  Report Type: Report from Study
  Country: US (occurrence: US)
  Receive Date: 20241230
  Receipt Date: 20250307
  Transmission Date: 20250409
  Serious: Yes (Death, Other)
  Sender: ACADIA PHARMACEUTICALS
  Company Number: US-ACADIA PHARMACEUTICALS INC.-ACA-2024-PIM-008817

PATIENT
  Age: 80 Year
  Sex: Female

DRUGS (13)
  1. NUPLAZID [Suspect]
     Active Substance: PIMAVANSERIN TARTRATE
     Indication: Hallucination
     Dosage: 34 MILLIGRAM, QD
     Route: 048
     Dates: start: 20240709, end: 20241212
  2. NUPLAZID [Suspect]
     Active Substance: PIMAVANSERIN TARTRATE
     Indication: Delusional disorder, unspecified type
  3. NUPLAZID [Suspect]
     Active Substance: PIMAVANSERIN TARTRATE
     Indication: Parkinson^s disease psychosis
  4. CALCIUM [Concomitant]
     Active Substance: CALCIUM
  5. CHOLECALCIFEROL [Concomitant]
     Active Substance: CHOLECALCIFEROL
  6. ALBUTEROL [Concomitant]
     Active Substance: ALBUTEROL
  7. IPRATROPIUM [Concomitant]
     Active Substance: IPRATROPIUM
  8. METOPROLOL [Concomitant]
     Active Substance: METOPROLOL
  9. PRAVASTATIN [Concomitant]
     Active Substance: PRAVASTATIN
  10. QUETIAPINE [Concomitant]
     Active Substance: QUETIAPINE
  11. QUETIAPINE [Concomitant]
     Active Substance: QUETIAPINE
  12. REXULTI [Concomitant]
     Active Substance: BREXPIPRAZOLE
  13. VENLAFAXINE [Concomitant]
     Active Substance: VENLAFAXINE HYDROCHLORIDE

REACTIONS (3)
  - Dementia [Fatal]
  - Fall [Fatal]
  - Off label use [Unknown]

NARRATIVE: CASE EVENT DATE: 20241212
